FAERS Safety Report 8477972-1 (Version None)
Quarter: 2012Q2

REPORT INFORMATION
  Report Type: 
  Country: None (occurrence: None)
  Receive Date: 20120629
  Receipt Date: 20120618
  Transmission Date: 20120825
  Serious: Yes (Hospitalization)
  Sender: FDA-Public Use
  Company Number: JP-BRISTOL-MYERS SQUIBB COMPANY-16708935

PATIENT
  Age: 69 Year
  Sex: Female

DRUGS (7)
  1. NORTRIPTYLINE HCL [Concomitant]
     Dosage: TAB
  2. TANDOSPIRONE CITRATE [Concomitant]
     Dosage: TAB
  3. MILNACIPRAN [Concomitant]
     Dosage: TAB
  4. BROTIZOLAM [Concomitant]
     Dosage: TAB
  5. ABILIFY [Suspect]
     Route: 048
  6. SULPIRIDE [Concomitant]
  7. TRAZODONE HCL [Concomitant]
     Dosage: TABS

REACTIONS (1)
  - DEEP VEIN THROMBOSIS [None]
